FAERS Safety Report 7410352-6 (Version None)
Quarter: 2011Q2

REPORT INFORMATION
  Report Type: 
  Country: None (occurrence: None)
  Receive Date: 20110412
  Receipt Date: 20110401
  Transmission Date: 20111010
  Serious: Yes (Hospitalization)
  Sender: FDA-Public Use
  Company Number: JP-WATSON-2011-03033

PATIENT
  Age: 36 Year
  Sex: Female
  Weight: 31.7 kg

DRUGS (4)
  1. CLONAZEPAM [Suspect]
     Indication: CONVULSION
     Dosage: 0.5 MG, BID
  2. PHENYTOIN [Suspect]
     Indication: CONVULSION
     Dosage: 100 MG, DAILY
  3. VECURONIUM BROMIDE [Suspect]
     Indication: GENERAL ANAESTHESIA
     Dosage: 3 MG, SINGLE
  4. ZONISAMIDE (WATSON LABORATORIES) [Suspect]
     Indication: CONVULSION
     Dosage: 100 MG, BID

REACTIONS (4)
  - RESPIRATORY DISORDER [None]
  - HYPOTONIA [None]
  - DRUG INTERACTION [None]
  - DRUG INEFFECTIVE [None]
